FAERS Safety Report 6913866-8 (Version None)
Quarter: 2010Q3

REPORT INFORMATION
  Report Type: 
  Country: None (occurrence: None)
  Receive Date: 20100809
  Receipt Date: 20100729
  Transmission Date: 20110219
  Serious: Yes (Hospitalization)
  Sender: FDA-Public Use
  Company Number: US-ROCHE-719152

PATIENT
  Age: 63 Year
  Sex: Female

DRUGS (3)
  1. OSELTAMIVIR [Suspect]
     Indication: H1N1 INFLUENZA
     Route: 048
  2. SOTALOL HCL [Suspect]
     Route: 065
  3. AMPICILLIN AND SULBACTAM [Concomitant]
     Indication: PYELONEPHRITIS

REACTIONS (1)
  - TORSADE DE POINTES [None]
